FAERS Safety Report 11254594 (Version 1)
Quarter: 2015Q3

REPORT INFORMATION
  Report Type: Spontaneous
  Country: US (occurrence: None)
  Receive Date: 20150708
  Receipt Date: 20150708
  Transmission Date: 20151125
  Serious: No
  Sender: FDA-Public Use
  Company Number: None

PATIENT
  Age: 70 Year
  Sex: Female
  Weight: 70.76 kg

DRUGS (4)
  1. SINGULAIR [Concomitant]
     Active Substance: MONTELUKAST SODIUM
  2. TERBINAFINE 250 MG [Suspect]
     Active Substance: TERBINAFINE
     Indication: ONYCHOMYCOSIS
     Dosage: 1 TABLET PER DAY ONCE DAILY TAKEN BY MOUTH
     Route: 048
     Dates: start: 20150529, end: 20150625
  3. VITAMIN B [Concomitant]
     Active Substance: VITAMIN B
  4. CALCIUM WITH VITAMIN D [Concomitant]
     Active Substance: CALCIUM\VITAMIN D

REACTIONS (3)
  - Dysgeusia [None]
  - Weight decreased [None]
  - Abdominal discomfort [None]
